FAERS Safety Report 6756802-X (Version None)
Quarter: 2010Q2

REPORT INFORMATION
  Report Type: 
  Country: None (occurrence: None)
  Receive Date: 20100604
  Receipt Date: 20100525
  Transmission Date: 20101027
  Serious: Yes (Other)
  Sender: FDA-Public Use
  Company Number: US-ELI_LILLY_AND_COMPANY-US201005006933

PATIENT
  Sex: Female
  Weight: 94.785 kg

DRUGS (8)
  1. BYETTA [Suspect]
     Indication: TYPE 2 DIABETES MELLITUS
     Dosage: 5 UG, 2/D
     Route: 058
     Dates: start: 20050101, end: 20050101
  2. BYETTA [Suspect]
     Dosage: 10 UG, 2/D
     Route: 058
     Dates: start: 20050101, end: 20050101
  3. BYETTA [Suspect]
     Dosage: 5 UG, 2/D
     Route: 058
     Dates: start: 20050101
  4. NOVOLOG [Concomitant]
     Indication: TYPE 2 DIABETES MELLITUS
     Route: 058
  5. LANTUS [Concomitant]
     Indication: TYPE 2 DIABETES MELLITUS
     Dosage: 80 U, EACH EVENING
     Route: 058
  6. LEVOTHYROXINE SODIUM [Concomitant]
     Dosage: UNK, DAILY (1/D)
     Route: 048
  7. ESTROGEN NOS [Concomitant]
     Dosage: UNK, DAILY (1/D)
     Route: 048
  8. SINGULAIR [Concomitant]
     Indication: ASTHMA
     Dosage: UNK, DAILY (1/D)
     Route: 048

REACTIONS (19)
  - BLOOD GLUCOSE DECREASED [None]
  - BLOOD GLUCOSE INCREASED [None]
  - BLOOD PRESSURE INCREASED [None]
  - CATARACT [None]
  - DIABETES MELLITUS INADEQUATE CONTROL [None]
  - EYE DISORDER [None]
  - EYE INFLAMMATION [None]
  - FEELING ABNORMAL [None]
  - HUNGER [None]
  - INSOMNIA [None]
  - NAUSEA [None]
  - NERVE INJURY [None]
  - OFF LABEL USE [None]
  - PARAESTHESIA [None]
  - SILENT MYOCARDIAL INFARCTION [None]
  - TREMOR [None]
  - VISUAL ACUITY REDUCED [None]
  - VITREOUS FLOATERS [None]
  - WEIGHT DECREASED [None]
